FAERS Safety Report 14762926 (Version 1)
Quarter: 2018Q2

REPORT INFORMATION
  Report Type: Spontaneous
  Country: NL (occurrence: NL)
  Receive Date: 20180416
  Receipt Date: 20180416
  Transmission Date: 20180711
  Serious: Yes (Other)
  Sender: FDA-Public Use
  Company Number: NL-SUN PHARMACEUTICAL INDUSTRIES LTD-2017RR-153640

PATIENT
  Age: 19 Year
  Sex: Male

DRUGS (6)
  1. TETRABENAZINE. [Suspect]
     Active Substance: TETRABENAZINE
     Indication: TOURETTE^S DISORDER
     Dosage: 25 MG, DAILY
     Route: 065
  2. METHYLPHENIDATE. [Suspect]
     Active Substance: METHYLPHENIDATE
     Indication: TOURETTE^S DISORDER
     Dosage: 54 MG, DAILY
     Route: 065
     Dates: start: 2009
  3. PIMOZIDE. [Suspect]
     Active Substance: PIMOZIDE
     Indication: TOURETTE^S DISORDER
     Dosage: 2 MG, DAILY
     Route: 065
  4. RISPERIDONE. [Suspect]
     Active Substance: RISPERIDONE
     Indication: TOURETTE^S DISORDER
     Dosage: 1 MG, DAILY
     Route: 065
     Dates: start: 2009
  5. PIPAMPERONE [Suspect]
     Active Substance: PIPAMPERONE
     Indication: TOURETTE^S DISORDER
     Dosage: UP TO 60 MG/DAY
     Route: 065
  6. SULPIRIDE [Suspect]
     Active Substance: SULPIRIDE
     Indication: TOURETTE^S DISORDER
     Dosage: 50 MG, DAILY
     Route: 065

REACTIONS (5)
  - Hyperprolactinaemia [Recovered/Resolved]
  - Drug effect incomplete [Unknown]
  - Drug ineffective [Unknown]
  - Breast swelling [Unknown]
  - Weight increased [Unknown]
